FAERS Safety Report 12970110 (Version 1)
Quarter: 2016Q4

REPORT INFORMATION
  Report Type: Report from Study
  Country: GB (occurrence: GB)
  Receive Date: 20161123
  Receipt Date: 20161123
  Transmission Date: 20170207
  Serious: Yes (Hospitalization, Other)
  Sender: FDA-Public Use
  Company Number: GB-PFIZER INC-2016539460

PATIENT
  Age: 63 Year
  Sex: Male
  Weight: 58 kg

DRUGS (3)
  1. NITROGLYCERIN. [Suspect]
     Active Substance: NITROGLYCERIN
  2. AZATHIOPRINE. [Concomitant]
     Active Substance: AZATHIOPRINE
     Indication: RHEUMATOID ARTHRITIS
  3. ETANERCEPT [Suspect]
     Active Substance: ETANERCEPT
     Indication: RHEUMATOID ARTHRITIS
     Dosage: UNK

REACTIONS (3)
  - Syncope [Unknown]
  - Malaise [Unknown]
  - Dizziness [Unknown]

NARRATIVE: CASE EVENT DATE: 20160427
